FAERS Safety Report 7084073-6 (Version None)
Quarter: 2010Q4

REPORT INFORMATION
  Report Type: 
  Country: None (occurrence: None)
  Receive Date: 20101104
  Receipt Date: 20100914
  Transmission Date: 20110411
  Serious: No
  Sender: FDA-Public Use
  Company Number: US-BAYER-201021489BCC

PATIENT
  Age: 18 Year
  Sex: Female
  Weight: 56 kg

DRUGS (1)
  1. ALEVE [Suspect]
     Indication: BACK INJURY
     Dosage: AS USED: 1540 MG  UNIT DOSE: 220 MG
     Route: 048
     Dates: start: 20100913

REACTIONS (1)
  - ABDOMINAL PAIN UPPER [None]
